FAERS Safety Report 6616066-4 (Version None)
Quarter: 2010Q1

REPORT INFORMATION
  Report Type: 
  Country: None (occurrence: None)
  Receive Date: 20100305
  Receipt Date: 20100222
  Transmission Date: 20100710
  Serious: Yes (Hospitalization)
  Sender: FDA-Public Use
  Company Number: PHHY2010US12037

PATIENT
  Sex: Female

DRUGS (4)
  1. RITALIN [Suspect]
     Dosage: 5 MG, UNK
  2. METHYLPHENIDATE [Suspect]
     Dosage: 20 MG, UNK
  3. SEROQUEL [Suspect]
  4. WELLBUTRIN [Suspect]

REACTIONS (1)
  - CONVULSION [None]
